FAERS Safety Report 25164758 (Version 2)
Quarter: 2025Q2

REPORT INFORMATION
  Report Type: Spontaneous
  Country: JP (occurrence: JP)
  Receive Date: 20250406
  Receipt Date: 20250408
  Transmission Date: 20250716
  Serious: Yes (Life-Threatening, Hospitalization)
  Sender: JOHNSON AND JOHNSON
  Company Number: JP-MLMSERVICE-20250317-PI447192-00118-1

PATIENT
  Age: 21 Year
  Sex: Female

DRUGS (11)
  1. RISPERDAL [Suspect]
     Active Substance: RISPERIDONE
     Indication: Schizophrenia
     Route: 048
     Dates: start: 20230329
  2. RISPERDAL [Suspect]
     Active Substance: RISPERIDONE
     Indication: Suicide attempt
  3. TRIAZOLAM [Suspect]
     Active Substance: TRIAZOLAM
     Indication: Schizophrenia
     Dates: start: 20230329
  4. TRIAZOLAM [Suspect]
     Active Substance: TRIAZOLAM
     Indication: Suicide attempt
  5. ALPRAZOLAM [Suspect]
     Active Substance: ALPRAZOLAM
     Indication: Schizophrenia
     Dates: start: 20230329
  6. ALPRAZOLAM [Suspect]
     Active Substance: ALPRAZOLAM
     Indication: Suicide attempt
  7. BROTIZOLAM [Suspect]
     Active Substance: BROTIZOLAM
     Indication: Schizophrenia
     Dates: start: 20230329
  8. BROTIZOLAM [Suspect]
     Active Substance: BROTIZOLAM
     Indication: Suicide attempt
  9. DEXTROMETHORPHAN [Interacting]
     Active Substance: DEXTROMETHORPHAN
     Indication: Suicide attempt
     Dates: start: 20230329
  10. DULOXETINE [Interacting]
     Active Substance: DULOXETINE
     Indication: Schizophrenia
     Dates: start: 20230329
  11. DULOXETINE [Interacting]
     Active Substance: DULOXETINE
     Indication: Suicide attempt

REACTIONS (11)
  - Coma [Recovered/Resolved]
  - Metabolic acidosis [Unknown]
  - Status epilepticus [Recovered/Resolved]
  - Quadriplegia [Recovered/Resolved]
  - Areflexia [Recovered/Resolved]
  - Hyperthermia [Recovered/Resolved]
  - Intentional overdose [Recovered/Resolved]
  - Suicide attempt [Recovered/Resolved]
  - Toxicity to various agents [Recovered/Resolved]
  - Atelectasis [Recovered/Resolved]
  - Drug interaction [Recovered/Resolved]

NARRATIVE: CASE EVENT DATE: 20230329
